FAERS Safety Report 23609432 (Version 1)
Quarter: 2024Q1

REPORT INFORMATION
  Report Type: Spontaneous
  Country: CN (occurrence: CN)
  Receive Date: 20240308
  Receipt Date: 20240308
  Transmission Date: 20240410
  Serious: Yes (Death, Other)
  Sender: FDA-Public Use
  Company Number: CN-RDY-LIT/CHN/24/0003944

PATIENT
  Age: 70 Year
  Sex: Male

DRUGS (13)
  1. LENALIDOMIDE [Suspect]
     Active Substance: LENALIDOMIDE
     Indication: Plasmacytoma
     Dosage: 25 MG ON DAYS 1-14 (FROM FEBRUARY 2021 TO APRIL 2021)
     Dates: start: 202102, end: 202104
  2. BORTEZOMIB [Suspect]
     Active Substance: BORTEZOMIB
     Indication: Plasmacytoma
     Dosage: 1.3 MG/M2 ON DAYS 1, 4, 8, AND 11
     Dates: start: 20200130
  3. BORTEZOMIB [Suspect]
     Active Substance: BORTEZOMIB
     Dosage: 1.3 MG/M2 ON DAYS 1, 4, 8, AND 11
     Dates: start: 202102, end: 202104
  4. DEXAMETHASONE [Suspect]
     Active Substance: DEXAMETHASONE
     Indication: Plasmacytoma
     Dosage: 20MG ON DAYS 1, 2, 4, 5, 8, 9, 11 AND 12, EVERY 21?DAYS
     Dates: start: 20200130
  5. DEXAMETHASONE [Suspect]
     Active Substance: DEXAMETHASONE
     Dosage: 20 MG ON DAYS 1, 2, 4, 5, 8, 9, 11, AND 12, EVERY 21 DAYS
     Dates: start: 202102, end: 202104
  6. DEXAMETHASONE [Suspect]
     Active Substance: DEXAMETHASONE
     Dosage: 20 MG ON DAYS 1,2,8,9,15,16,22AND 23, EVERY 28 DAYS
     Dates: start: 202107, end: 202110
  7. DEXAMETHASONE [Suspect]
     Active Substance: DEXAMETHASONE
     Dosage: 20 MG ON DAYS 1-4
     Dates: start: 202111
  8. DOXORUBICIN [Suspect]
     Active Substance: DOXORUBICIN
     Indication: Plasmacytoma
     Dosage: 10 MG/M2 ON DAYS 1-4
     Dates: start: 20200130
  9. DARATUMUMAB [Suspect]
     Active Substance: DARATUMUMAB
     Indication: Plasmacytoma
     Dates: start: 202107, end: 202110
  10. POMALIDOMIDE [Suspect]
     Active Substance: POMALIDOMIDE
     Indication: Plasmacytoma
     Dosage: 4 MG ON DAYS 1-21, FOR 3 CYCLES
     Dates: start: 202107, end: 202110
  11. ETOPOSIDE [Suspect]
     Active Substance: ETOPOSIDE
     Indication: Plasmacytoma
     Dosage: 100 MG/D ON DAYS 1-3
     Dates: start: 202111
  12. CYCLOPHOSPHAMIDE [Suspect]
     Active Substance: CYCLOPHOSPHAMIDE
     Indication: Plasmacytoma
     Dosage: 500 MG/M2 ON DAYS 1-4
     Dates: start: 202111
  13. CISPLATIN [Suspect]
     Active Substance: CISPLATIN
     Indication: Plasmacytoma
     Dosage: 20 MG/M2 ON DAYS 1-3, EVERY 28 DAYS
     Dates: start: 202111

REACTIONS (2)
  - Disease progression [Fatal]
  - Drug ineffective for unapproved indication [Unknown]
